FAERS Safety Report 9895304 (Version 1)
Quarter: 2014Q1

REPORT INFORMATION
  Report Type: Spontaneous
  Country: US (occurrence: US)
  Receive Date: 20140213
  Receipt Date: 20140213
  Transmission Date: 20141002
  Serious: No
  Sender: FDA-Public Use
  Company Number: US-BRISTOL-MYERS SQUIBB COMPANY-18929828

PATIENT
  Age: 53 Year
  Sex: Female

DRUGS (12)
  1. ABATACEPT SUBQ INJECTION 125MG/ML [Suspect]
     Indication: RHEUMATOID ARTHRITIS
     Dosage: 1DF:125MG/ML
     Route: 058
  2. PROVENTIL [Concomitant]
  3. ZETIA [Concomitant]
     Dosage: TABS
  4. PREDNISONE [Concomitant]
     Dosage: TABS
  5. PLAVIX TABS [Concomitant]
  6. LIPITOR [Concomitant]
     Dosage: TABS
  7. COREG [Concomitant]
     Dosage: COREG CR CAPS 20 MG
  8. MULTIVITAMIN [Concomitant]
     Dosage: CAPS
  9. ZYRTEC [Concomitant]
     Dosage: TABS
  10. ADVAIR DISKUS [Concomitant]
     Dosage: 1DF:ADVAIR DISKUS AER 100/50
  11. ASPIRINE [Concomitant]
     Dosage: ADLT TAB
  12. AMLODIPINE [Concomitant]
     Dosage: TABS

REACTIONS (3)
  - Nasal congestion [Unknown]
  - Dyspnoea [Unknown]
  - Cough [Unknown]
